FAERS Safety Report 16330493 (Version 2)
Quarter: 2019Q2

REPORT INFORMATION
  Report Type: Spontaneous
  Country: US (occurrence: US)
  Receive Date: 20190520
  Receipt Date: 20190520
  Transmission Date: 20190711
  Serious: No
  Sender: FDA-Public Use
  Company Number: US-TEVA-2019-US-1051360

PATIENT
  Age: 64 Year
  Sex: Female
  Weight: 69.01 kg

DRUGS (1)
  1. AJOVY [Suspect]
     Active Substance: FREMANEZUMAB-VFRM
     Indication: MIGRAINE
     Dosage: ONE INJECTION MONTHLY
     Route: 058
     Dates: start: 20190409, end: 201905

REACTIONS (8)
  - Generalised erythema [Not Recovered/Not Resolved]
  - Insomnia [Unknown]
  - Rash papular [Recovering/Resolving]
  - Pruritus [Not Recovered/Not Resolved]
  - Pain [Unknown]
  - Feeling abnormal [Unknown]
  - Burning sensation [Not Recovered/Not Resolved]
  - Hypersensitivity [Unknown]

NARRATIVE: CASE EVENT DATE: 201904
